FAERS Safety Report 25062070 (Version 1)
Quarter: 2025Q1

REPORT INFORMATION
  Report Type: Spontaneous
  Country: RU (occurrence: RU)
  Receive Date: 20250311
  Receipt Date: 20250311
  Transmission Date: 20250408
  Serious: Yes (Other)
  Sender: AMGEN
  Company Number: RU-PFIZER INC-PV202500005453

PATIENT
  Sex: Female
  Weight: 60 kg

DRUGS (5)
  1. ENBREL [Suspect]
     Active Substance: ETANERCEPT
     Indication: Juvenile idiopathic arthritis
     Dosage: 2X25 MG
     Route: 058
     Dates: start: 20230727
  2. ENBREL [Suspect]
     Active Substance: ETANERCEPT
     Route: 065
  3. METHOTREXATE [Suspect]
     Active Substance: METHOTREXATE
     Indication: Juvenile idiopathic arthritis
     Dosage: 17.5 MG, WEEKLY
     Route: 065
     Dates: start: 20230606, end: 202401
  4. ARAVA [Concomitant]
     Active Substance: LEFLUNOMIDE
     Indication: Juvenile idiopathic arthritis
     Dosage: 20 MG, DAILY
     Route: 065
     Dates: start: 202401, end: 202412
  5. PLAQUENIL [Concomitant]
     Active Substance: HYDROXYCHLOROQUINE SULFATE
     Indication: Juvenile idiopathic arthritis
     Dosage: 200 MG, DAILY
     Route: 065
     Dates: start: 202410

REACTIONS (6)
  - Systemic lupus erythematosus [Not Recovered/Not Resolved]
  - Hallucination [Recovered/Resolved]
  - Vomiting [Not Recovered/Not Resolved]
  - Gastrointestinal disorder [Not Recovered/Not Resolved]
  - Stomatitis [Recovered/Resolved]
  - Disease recurrence [Recovered/Resolved]

NARRATIVE: CASE EVENT DATE: 20240901
